FAERS Safety Report 11737368 (Version 1)
Quarter: 2015Q4

REPORT INFORMATION
  Report Type: Spontaneous
  Country: US (occurrence: US)
  Receive Date: 20151113
  Receipt Date: 20151113
  Transmission Date: 20160304
  Serious: No
  Sender: FDA-Public Use
  Company Number: CHPA2015US013405

PATIENT
  Age: 64 Year
  Sex: Female

DRUGS (1)
  1. VOLTAREN [Suspect]
     Active Substance: DICLOFENAC SODIUM
     Indication: PRODUCT USED FOR UNKNOWN INDICATION
     Dosage: SIZE OF A THUMB NAIL OR PEA, BID
     Route: 061
     Dates: start: 20151106, end: 20151107

REACTIONS (6)
  - Wrong technique in product usage process [Unknown]
  - Inappropriate schedule of drug administration [Unknown]
  - Asthma [Recovered/Resolved]
  - Dyspnoea [Recovered/Resolved]
  - Bronchospasm [Recovered/Resolved]
  - Drug administered at inappropriate site [Unknown]

NARRATIVE: CASE EVENT DATE: 20151106
